FAERS Safety Report 18370935 (Version 1)
Quarter: 2020Q4

REPORT INFORMATION
  Report Type: Spontaneous
  Country: US (occurrence: US)
  Receive Date: 20201012
  Receipt Date: 20201012
  Transmission Date: 20210114
  Serious: Yes (Other)
  Sender: FDA-Public Use
  Company Number: US-AMGEN-USASP2020162251

PATIENT
  Age: 57 Year
  Sex: Female

DRUGS (3)
  1. PACLITAXEL. [Concomitant]
     Active Substance: PACLITAXEL
     Indication: NON-SMALL CELL LUNG CANCER STAGE III
     Dosage: UNK UNK, QWK, FOR 6 WEEKS
  2. CARBOPLATIN. [Concomitant]
     Active Substance: CARBOPLATIN
     Indication: NON-SMALL CELL LUNG CANCER STAGE III
     Dosage: UNK UNK, QWK, FOR 6 WEEKS
  3. PANITUMUMAB [Suspect]
     Active Substance: PANITUMUMAB
     Indication: NON-SMALL CELL LUNG CANCER STAGE III
     Dosage: UNK, QWK FOR 6 WEEKS
     Route: 065

REACTIONS (2)
  - Adenocarcinoma [Unknown]
  - Therapy partial responder [Unknown]
